FAERS Safety Report 6808420-2 (Version None)
Quarter: 2010Q2

REPORT INFORMATION
  Report Type: 
  Country: None (occurrence: None)
  Receive Date: 20100629
  Receipt Date: 20090731
  Transmission Date: 20101027
  Serious: No
  Sender: FDA-Public Use
  Company Number: US-PFIZER INC-2009198210

PATIENT
  Sex: Female
  Weight: 50.8 kg

DRUGS (1)
  1. ZYVOX [Suspect]
     Indication: STAPHYLOCOCCAL INFECTION
     Dosage: 600 MG, 2X/DAY
     Dates: start: 20090321, end: 20090403

REACTIONS (3)
  - MUSCLE SPASMS [None]
  - PARAESTHESIA [None]
  - VISION BLURRED [None]
